FAERS Safety Report 16020101 (Version 1)
Quarter: 2019Q1

REPORT INFORMATION
  Report Type: Spontaneous
  Country: US (occurrence: US)
  Receive Date: 20190228
  Receipt Date: 20190228
  Transmission Date: 20190418
  Serious: Yes (Other)
  Sender: FDA-Public Use
  Company Number: US-ELI_LILLY_AND_COMPANY-US201902011641

PATIENT
  Sex: Female

DRUGS (10)
  1. EFFEXOR [Suspect]
     Active Substance: VENLAFAXINE HYDROCHLORIDE
     Indication: BIPOLAR DISORDER
  2. LEXAPRO [Suspect]
     Active Substance: ESCITALOPRAM OXALATE
     Indication: BIPOLAR DISORDER
  3. CLONAZEPAM. [Suspect]
     Active Substance: CLONAZEPAM
     Indication: OBSESSIVE-COMPULSIVE DISORDER
     Dosage: UNK UNK, UNKNOWN
     Route: 065
  4. CLONAZEPAM. [Suspect]
     Active Substance: CLONAZEPAM
     Indication: BIPOLAR DISORDER
  5. LITHIUM. [Suspect]
     Active Substance: LITHIUM
     Indication: OBSESSIVE-COMPULSIVE DISORDER
     Dosage: UNK UNK, UNKNOWN
     Route: 065
  6. LEXAPRO [Suspect]
     Active Substance: ESCITALOPRAM OXALATE
     Indication: OBSESSIVE-COMPULSIVE DISORDER
     Dosage: UNK UNK, UNKNOWN
     Route: 065
  7. EFFEXOR [Suspect]
     Active Substance: VENLAFAXINE HYDROCHLORIDE
     Indication: OBSESSIVE-COMPULSIVE DISORDER
     Dosage: UNK, UNKNOWN
     Route: 065
  8. PROZAC [Suspect]
     Active Substance: FLUOXETINE HYDROCHLORIDE
     Indication: BIPOLAR DISORDER
  9. PROZAC [Suspect]
     Active Substance: FLUOXETINE HYDROCHLORIDE
     Indication: OBSESSIVE-COMPULSIVE DISORDER
     Dosage: 80 MG, UNKNOWN
     Route: 065
  10. LITHIUM. [Suspect]
     Active Substance: LITHIUM
     Indication: BIPOLAR DISORDER

REACTIONS (8)
  - Lactation puerperal increased [Unknown]
  - Blood oestrogen increased [Unknown]
  - Weight decreased [Unknown]
  - Joint noise [Unknown]
  - Pituitary tumour benign [Recovered/Resolved]
  - Lymphoma [Unknown]
  - Renal neoplasm [Not Recovered/Not Resolved]
  - Breast cancer [Unknown]
